FAERS Safety Report 18241674 (Version 3)
Quarter: 2022Q3

REPORT INFORMATION
  Report Type: Spontaneous
  Country: DE (occurrence: DE)
  Receive Date: 20200908
  Receipt Date: 20220713
  Transmission Date: 20221027
  Serious: Yes (Hospitalization, Other)
  Sender: FDA-Public Use
  Company Number: DE-GSKCCFEMEA-CASE-01023274_AE-33515

PATIENT

DRUGS (3)
  1. FLUTICASONE PROPIONATE\SALMETEROL XINAFOATE [Suspect]
     Active Substance: FLUTICASONE PROPIONATE\SALMETEROL XINAFOATE
     Indication: Asthma
     Dosage: UNK
  2. FLUTICASONE PROPIONATE\SALMETEROL XINAFOATE [Suspect]
     Active Substance: FLUTICASONE PROPIONATE\SALMETEROL XINAFOATE
     Indication: Chronic obstructive pulmonary disease
  3. CORTISONE ACETATE [Suspect]
     Active Substance: CORTISONE ACETATE
     Indication: Product used for unknown indication
     Dosage: UNK

REACTIONS (3)
  - Prostate cancer [Unknown]
  - Cerebral disorder [Unknown]
  - Computerised tomogram pelvis abnormal [Unknown]

NARRATIVE: CASE EVENT DATE: 20200701
